FAERS Safety Report 8113793-7 (Version None)
Quarter: 2012Q1

REPORT INFORMATION
  Report Type: 
  Country: None (occurrence: None)
  Receive Date: 20120203
  Receipt Date: 20120202
  Transmission Date: 20120608
  Serious: Yes (Other)
  Sender: FDA-Public Use
  Company Number: US-AMGEN-USASP2011051656

PATIENT
  Age: 68 Year
  Sex: Female
  Weight: 66.213 kg

DRUGS (3)
  1. CORTICOSTEROIDS [Concomitant]
     Indication: MYELODYSPLASTIC SYNDROME
  2. CORTICOSTEROIDS [Concomitant]
     Indication: THROMBOCYTOPENIA
     Dosage: 200 UNK, UNK
  3. NPLATE [Suspect]
     Indication: THROMBOCYTOPENIA
     Dosage: 200 MUG, UNK
     Dates: start: 20110526, end: 20110531

REACTIONS (4)
  - PANCYTOPENIA [None]
  - MYELODYSPLASTIC SYNDROME [None]
  - THERAPEUTIC RESPONSE DECREASED [None]
  - MULTIPLE MYELOMA [None]
